FAERS Safety Report 10730977 (Version 1)
Quarter: 2015Q1

REPORT INFORMATION
  Report Type: Report from Study
  Country: JP (occurrence: JP)
  Receive Date: 20150122
  Receipt Date: 20150122
  Transmission Date: 20150721
  Serious: Yes (Other)
  Sender: FDA-Public Use
  Company Number: JP-BRISTOL-MYERS SQUIBB COMPANY-21678628

PATIENT
  Age: 42 Year
  Sex: Female

DRUGS (1)
  1. NIVOLUMAB [Suspect]
     Active Substance: NIVOLUMAB
     Indication: MALIGNANT MELANOMA
     Dosage: 120 MG, UNK
     Route: 041
     Dates: start: 20141003, end: 20141003

REACTIONS (5)
  - Malignant pleural effusion [Unknown]
  - Lymphangiosis carcinomatosa [Unknown]
  - Abdominal pain [Recovering/Resolving]
  - Pleural effusion [Not Recovered/Not Resolved]
  - Respiratory failure [Not Recovered/Not Resolved]

NARRATIVE: CASE EVENT DATE: 2014
